FAERS Safety Report 24146721 (Version 2)
Quarter: 2024Q3

REPORT INFORMATION
  Report Type: Spontaneous
  Country: AT (occurrence: AT)
  Receive Date: 20240729
  Receipt Date: 20240809
  Transmission Date: 20241017
  Serious: Yes (Other)
  Sender: BAUSCH AND LOMB
  Company Number: AT-TEVA-VS-3221828

PATIENT
  Age: 66 Year
  Sex: Female

DRUGS (6)
  1. DEXAMETHASONE [Suspect]
     Active Substance: DEXAMETHASONE
     Indication: Plasma cell myeloma
     Dosage: INDUCTION THERAPY (4 CYCLES)
     Route: 065
     Dates: start: 2017, end: 201712
  2. DEXAMETHASONE [Suspect]
     Active Substance: DEXAMETHASONE
     Dosage: CONSOLIDATION THERAPY (4 CYCLES)
     Route: 065
     Dates: start: 201712, end: 2018
  3. BORTEZOMIB [Suspect]
     Active Substance: BORTEZOMIB
     Indication: Plasma cell myeloma
     Dosage: INDUCTION THERAPY (4 CYCLES)
     Route: 065
     Dates: start: 2017, end: 201712
  4. CYCLOPHOSPHAMIDE [Suspect]
     Active Substance: CYCLOPHOSPHAMIDE
     Indication: Plasma cell myeloma
     Dosage: INDUCTION THERAPY (4 CYCLES)
     Route: 065
     Dates: start: 2017, end: 201712
  5. CARFILZOMIB [Suspect]
     Active Substance: CARFILZOMIB
     Indication: Plasma cell myeloma
     Dosage: CONSOLIDATION THERAPY (4 CYCLES)
     Route: 065
     Dates: start: 201712, end: 2018
  6. LENALIDOMIDE [Suspect]
     Active Substance: LENALIDOMIDE
     Indication: Plasma cell myeloma
     Dosage: CONSOLIDATION THERAPY (4 CYCLES)
     Route: 065
     Dates: start: 201712, end: 2018

REACTIONS (2)
  - Pancytopenia [Unknown]
  - Therapy partial responder [Unknown]

NARRATIVE: CASE EVENT DATE: 20171201
